FAERS Safety Report 10738402 (Version 1)
Quarter: 2015Q1

REPORT INFORMATION
  Report Type: Spontaneous
  Country: US (occurrence: None)
  Receive Date: 20150122
  Receipt Date: 20150122
  Transmission Date: 20150721
  Serious: No
  Sender: FDA-Public Use
  Company Number: None

PATIENT
  Age: 38 Year
  Sex: Male

DRUGS (1)
  1. ABILIFY [Suspect]
     Active Substance: ARIPIPRAZOLE
     Indication: DELUSION
     Dosage: 1 TABLET
     Route: 048

REACTIONS (5)
  - Abdominal pain upper [None]
  - Nausea [None]
  - Vomiting [None]
  - Chest pain [None]
  - Pyrexia [None]

NARRATIVE: CASE EVENT DATE: 20150116
